FAERS Safety Report 24591873 (Version 1)
Quarter: 2024Q4

REPORT INFORMATION
  Report Type: Spontaneous
  Country: FR (occurrence: FR)
  Receive Date: 20241108
  Receipt Date: 20241108
  Transmission Date: 20250114
  Serious: Yes (Other)
  Sender: TEVA
  Company Number: None

PATIENT
  Age: 35 Year
  Sex: Male

DRUGS (1)
  1. TRAMADOL [Suspect]
     Active Substance: TRAMADOL
     Indication: Product used for unknown indication
     Dosage: 200 MG LP (1 MORNING AND 1 EVENING) + 2 X50 MG LI AT MIDDAY, I.E. 500 MG/DAY; TRAMADOL BASE
     Route: 048
     Dates: start: 2015

REACTIONS (1)
  - Drug dependence [Not Recovered/Not Resolved]
